FAERS Safety Report 9686836 (Version 1)
Quarter: 2013Q4

REPORT INFORMATION
  Report Type: Spontaneous
  Country: IT (occurrence: IT)
  Receive Date: 20131113
  Receipt Date: 20131113
  Transmission Date: 20140711
  Serious: Yes (Other)
  Sender: FDA-Public Use
  Company Number: IT-PFIZER INC-2013323085

PATIENT
  Age: 57 Year
  Sex: 0

DRUGS (1)
  1. SUTENT [Suspect]
     Dosage: UNK
     Dates: start: 20130510, end: 20131028

REACTIONS (1)
  - Hypertensive crisis [Unknown]
